FAERS Safety Report 16395669 (Version 1)
Quarter: 2019Q2

REPORT INFORMATION
  Report Type: Report from Study
  Country: DE (occurrence: DE)
  Receive Date: 20190605
  Receipt Date: 20190605
  Transmission Date: 20190711
  Serious: Yes (Death, Life-Threatening)
  Sender: FDA-Public Use
  Company Number: DE-BAUSCH-BL-2019-015344

PATIENT
  Age: 45 Year
  Sex: Male

DRUGS (51)
  1. REMERON [Suspect]
     Active Substance: MIRTAZAPINE
     Indication: ILL-DEFINED DISORDER
     Route: 048
     Dates: start: 19981126, end: 19981203
  2. DIFLUCAN [Suspect]
     Active Substance: FLUCONAZOLE
     Indication: ILL-DEFINED DISORDER
     Route: 042
     Dates: end: 19981119
  3. LASIX [Suspect]
     Active Substance: FUROSEMIDE
     Indication: ILL-DEFINED DISORDER
     Route: 042
     Dates: start: 19981126, end: 19981126
  4. COTRIMOXAZOLE [Suspect]
     Active Substance: SULFAMETHOXAZOLE\TRIMETHOPRIM
     Indication: ILL-DEFINED DISORDER
     Route: 065
     Dates: start: 19981113, end: 19981206
  5. GANCICLOVIR. [Suspect]
     Active Substance: GANCICLOVIR
     Indication: ILL-DEFINED DISORDER
     Route: 042
     Dates: start: 19981127, end: 19990101
  6. SANDIMMUN [Concomitant]
     Active Substance: CYCLOSPORINE
     Indication: PRODUCT USED FOR UNKNOWN INDICATION
  7. DOLANTIN [Concomitant]
     Active Substance: MEPERIDINE
     Indication: PRODUCT USED FOR UNKNOWN INDICATION
     Dates: start: 19981111, end: 19981121
  8. K-DUR [Concomitant]
     Active Substance: POTASSIUM CHLORIDE
     Indication: PRODUCT USED FOR UNKNOWN INDICATION
  9. FUROSEMIDE. [Suspect]
     Active Substance: FUROSEMIDE
     Indication: ILL-DEFINED DISORDER
     Route: 042
     Dates: start: 19981013
  10. ANTRA [OMEPRAZOLE] [Concomitant]
     Active Substance: OMEPRAZOLE
     Indication: PRODUCT USED FOR UNKNOWN INDICATION
  11. TARIVID [OFLOXACIN] [Concomitant]
     Indication: PRODUCT USED FOR UNKNOWN INDICATION
     Dates: end: 19981110
  12. PHENYLEPHRINE HYDROCHLORIDE. [Concomitant]
     Active Substance: PHENYLEPHRINE HYDROCHLORIDE
     Indication: PRODUCT USED FOR UNKNOWN INDICATION
     Dates: start: 19981113
  13. AMPHOTERICIN B. [Concomitant]
     Active Substance: AMPHOTERICIN B
     Indication: PRODUCT USED FOR UNKNOWN INDICATION
     Dates: start: 19981117, end: 19981121
  14. AQUAPHOR (XIPAMIDE) [Concomitant]
     Active Substance: XIPAMIDE
     Indication: PRODUCT USED FOR UNKNOWN INDICATION
     Route: 048
     Dates: start: 19981120, end: 19981120
  15. KONAKION [Suspect]
     Active Substance: PHYTONADIONE
     Indication: ILL-DEFINED DISORDER
     Route: 042
     Dates: end: 19981207
  16. INSULIN HUMAN [Concomitant]
     Active Substance: INSULIN HUMAN
     Indication: PRODUCT USED FOR UNKNOWN INDICATION
     Dates: start: 19981115, end: 19981207
  17. MORPHINE [Concomitant]
     Active Substance: MORPHINE
     Indication: PRODUCT USED FOR UNKNOWN INDICATION
     Dates: start: 19981111, end: 19981123
  18. DEXTROSE. [Concomitant]
     Active Substance: DEXTROSE
     Indication: PRODUCT USED FOR UNKNOWN INDICATION
  19. ACICLOVIR [Concomitant]
     Active Substance: ACYCLOVIR
     Indication: PRODUCT USED FOR UNKNOWN INDICATION
  20. AMINO ACIDS NOS;MINERALS NOS [Concomitant]
     Indication: PRODUCT USED FOR UNKNOWN INDICATION
     Dates: start: 19981013
  21. PREDNISOLONE. [Concomitant]
     Active Substance: PREDNISOLONE
     Indication: PRODUCT USED FOR UNKNOWN INDICATION
     Dates: start: 19981119, end: 19981121
  22. NEUPOGEN [Suspect]
     Active Substance: FILGRASTIM
     Indication: COMPLICATIONS OF BONE MARROW TRANSPLANT
     Route: 042
     Dates: start: 19981127, end: 19981130
  23. FORTUM [CEFTAZIDIME] [Suspect]
     Active Substance: CEFTAZIDIME
     Indication: ILL-DEFINED DISORDER
     Route: 042
     Dates: start: 19981111, end: 19981205
  24. ZIENAM [Suspect]
     Active Substance: CILASTATIN SODIUM\IMIPENEM
     Indication: ILL-DEFINED DISORDER
     Route: 042
     Dates: start: 19981120, end: 19990101
  25. RESONIUM A [Suspect]
     Active Substance: SODIUM POLYSTYRENE SULFONATE
     Indication: ILL-DEFINED DISORDER
     Route: 048
     Dates: start: 19981129, end: 19981129
  26. VANCOMYCIN [Concomitant]
     Active Substance: VANCOMYCIN
     Indication: PRODUCT USED FOR UNKNOWN INDICATION
     Dates: start: 19981111
  27. ASCORBIC ACID. [Concomitant]
     Active Substance: ASCORBIC ACID
     Indication: PRODUCT USED FOR UNKNOWN INDICATION
  28. SODIUM BICARBONATE. [Concomitant]
     Active Substance: SODIUM BICARBONATE
     Indication: PRODUCT USED FOR UNKNOWN INDICATION
     Dates: start: 19981201, end: 19981206
  29. ACETYLCYSTEINE. [Concomitant]
     Active Substance: ACETYLCYSTEINE
     Indication: PRODUCT USED FOR UNKNOWN INDICATION
     Dates: start: 19981117, end: 19981119
  30. AMINO ACIDS NOS;CARBOHYDRATES NOS;FATS NOS [Concomitant]
     Indication: PRODUCT USED FOR UNKNOWN INDICATION
     Dates: end: 19981129
  31. INTRALIPID [Concomitant]
     Active Substance: EGG PHOSPHOLIPIDS\GLYCERIN\SOYBEAN OIL
     Indication: PRODUCT USED FOR UNKNOWN INDICATION
  32. PREDNISOLONE. [Suspect]
     Active Substance: PREDNISOLONE
     Indication: ILL-DEFINED DISORDER
     Route: 061
     Dates: start: 19981204
  33. GENTAMICIN SULFATE. [Suspect]
     Active Substance: GENTAMICIN SULFATE
     Indication: CONJUNCTIVITIS
     Route: 047
     Dates: start: 19981129, end: 19981129
  34. VOMEX A [Suspect]
     Active Substance: DIMENHYDRINATE
     Indication: ILL-DEFINED DISORDER
     Route: 042
     Dates: start: 19981118, end: 19981130
  35. LENOGRASTIM [Concomitant]
     Active Substance: LENOGRASTIM
     Indication: PRODUCT USED FOR UNKNOWN INDICATION
     Dates: end: 19981128
  36. AMPHO MORONAL [Concomitant]
     Active Substance: AMPHOTERICIN B
     Indication: PRODUCT USED FOR UNKNOWN INDICATION
     Dates: end: 19981122
  37. CALCIUM [Concomitant]
     Active Substance: CALCIUM
     Indication: PRODUCT USED FOR UNKNOWN INDICATION
  38. METHOTREXATE. [Concomitant]
     Active Substance: METHOTREXATE
     Indication: PRODUCT USED FOR UNKNOWN INDICATION
     Dates: start: 19981111, end: 19981111
  39. TAVOR (LORAZEPAM) [Suspect]
     Active Substance: LORAZEPAM
     Indication: ILL-DEFINED DISORDER
     Route: 042
     Dates: end: 19981125
  40. NOVALGIN [CAFFEINE;PARACETAMOL;PROPYPHENAZONE] [Suspect]
     Active Substance: ACETAMINOPHEN\CAFFEINE\PROPYPHENAZONE
     Indication: ILL-DEFINED DISORDER
     Route: 042
     Dates: start: 19981111
  41. CIPROFLOXACIN BETAIN [Suspect]
     Active Substance: CIPROFLOXACIN
     Indication: CYSTITIS
     Route: 042
     Dates: start: 19981130, end: 19981208
  42. TOBRAMYCIN. [Suspect]
     Active Substance: TOBRAMYCIN
     Indication: ILL-DEFINED DISORDER
     Route: 042
     Dates: start: 19981114, end: 19981121
  43. AMBISOME LYOPHILISIERTES [Suspect]
     Active Substance: AMPHOTERICIN B\CHOLESTEROL
     Indication: ILL-DEFINED DISORDER
     Route: 042
     Dates: start: 19981122, end: 19990101
  44. MAGNESIUM [Concomitant]
     Active Substance: MAGNESIUM
     Indication: PRODUCT USED FOR UNKNOWN INDICATION
     Dates: end: 19981202
  45. ALPROSTADIL. [Concomitant]
     Active Substance: ALPROSTADIL
     Indication: PRODUCT USED FOR UNKNOWN INDICATION
     Dates: start: 19981111, end: 19981119
  46. CLONT [Concomitant]
     Indication: PRODUCT USED FOR UNKNOWN INDICATION
  47. METHYLPREDNISOLONE. [Suspect]
     Active Substance: METHYLPREDNISOLONE
     Indication: ILL-DEFINED DISORDER
     Route: 042
     Dates: start: 19981121, end: 19990101
  48. DOPAMINE HYDROCHLORIDE. [Suspect]
     Active Substance: DOPAMINE HYDROCHLORIDE
     Indication: ILL-DEFINED DISORDER
     Route: 042
     Dates: start: 19981119, end: 19990101
  49. TAVEGIL [Concomitant]
     Active Substance: CLEMASTINE FUMARATE
     Indication: PRODUCT USED FOR UNKNOWN INDICATION
     Dates: start: 19981118, end: 19981121
  50. PEPDUL [Concomitant]
     Active Substance: FAMOTIDINE
     Indication: PRODUCT USED FOR UNKNOWN INDICATION
     Dates: end: 19981110
  51. GLOBULIN V [Concomitant]
     Indication: PRODUCT USED FOR UNKNOWN INDICATION
     Dates: start: 19981115, end: 19981126

REACTIONS (1)
  - Toxic epidermal necrolysis [Fatal]

NARRATIVE: CASE EVENT DATE: 19981208
